FAERS Safety Report 15759437 (Version 3)
Quarter: 2025Q2

REPORT INFORMATION
  Report Type: Spontaneous
  Country: IT (occurrence: IT)
  Receive Date: 20181226
  Receipt Date: 20250428
  Transmission Date: 20250716
  Serious: Yes (Hospitalization, Other)
  Sender: AUROBINDO
  Company Number: IT-AUROBINDO-AUR-APL-2018-016410

PATIENT
  Age: 54 Year
  Sex: Male

DRUGS (30)
  1. OXALIPLATIN [Suspect]
     Active Substance: OXALIPLATIN
     Indication: Metastases to liver
     Route: 065
     Dates: start: 20170223
  2. OXALIPLATIN [Suspect]
     Active Substance: OXALIPLATIN
     Indication: Pulmonary mass
     Route: 065
     Dates: start: 201706
  3. OXALIPLATIN [Suspect]
     Active Substance: OXALIPLATIN
     Indication: Metastases to bone
  4. OXALIPLATIN [Suspect]
     Active Substance: OXALIPLATIN
     Indication: Colon cancer metastatic
  5. FLUOROURACIL [Suspect]
     Active Substance: FLUOROURACIL
     Indication: Colon cancer metastatic
     Route: 042
     Dates: start: 20170223
  6. FLUOROURACIL [Suspect]
     Active Substance: FLUOROURACIL
     Indication: Pulmonary mass
     Route: 042
     Dates: start: 201706
  7. FLUOROURACIL [Suspect]
     Active Substance: FLUOROURACIL
     Indication: Metastases to bone
     Route: 040
     Dates: start: 201706
  8. FLUOROURACIL [Suspect]
     Active Substance: FLUOROURACIL
     Indication: Metastases to liver
  9. METHYLPREDNISOLONE [Suspect]
     Active Substance: METHYLPREDNISOLONE
     Indication: Immunosuppressant drug therapy
     Dosage: 1 GRAM, ONCE A DAY
     Route: 042
  10. METHYLPREDNISOLONE [Suspect]
     Active Substance: METHYLPREDNISOLONE
     Indication: Encephalitis autoimmune
     Route: 065
  11. PREDNISONE [Suspect]
     Active Substance: PREDNISONE
     Indication: Immunosuppressant drug therapy
     Dosage: 25 MILLIGRAM, ONCE A DAY
     Route: 048
  12. PREDNISONE [Suspect]
     Active Substance: PREDNISONE
     Indication: Encephalitis autoimmune
     Dosage: 25 MILLIGRAM, ONCE A DAY
     Route: 048
  13. PREDNISONE [Suspect]
     Active Substance: PREDNISONE
     Indication: Immunosuppressant drug therapy
  14. BEVACIZUMAB [Suspect]
     Active Substance: BEVACIZUMAB
     Indication: Colon cancer metastatic
     Route: 042
     Dates: start: 201706
  15. BEVACIZUMAB [Suspect]
     Active Substance: BEVACIZUMAB
     Indication: Metastases to liver
     Route: 042
     Dates: start: 20170223
  16. BEVACIZUMAB [Suspect]
     Active Substance: BEVACIZUMAB
     Indication: Pulmonary mass
  17. BEVACIZUMAB [Suspect]
     Active Substance: BEVACIZUMAB
     Indication: Metastases to bone
  18. LEUCOVORIN [Suspect]
     Active Substance: LEUCOVORIN\LEUCOVORIN CALCIUM
     Indication: Colon cancer metastatic
     Route: 065
     Dates: start: 201706
  19. LEUCOVORIN [Suspect]
     Active Substance: LEUCOVORIN\LEUCOVORIN CALCIUM
     Route: 065
     Dates: start: 20170223
  20. LEUCOVORIN [Suspect]
     Active Substance: LEUCOVORIN\LEUCOVORIN CALCIUM
     Indication: Metastases to bone
     Route: 065
     Dates: start: 20170223
  21. LEUCOVORIN [Suspect]
     Active Substance: LEUCOVORIN\LEUCOVORIN CALCIUM
     Indication: Metastases to liver
     Route: 065
     Dates: start: 201706
  22. LEUCOVORIN [Suspect]
     Active Substance: LEUCOVORIN\LEUCOVORIN CALCIUM
     Indication: Colon cancer metastatic
  23. VITAMIN D [Concomitant]
     Active Substance: VITAMIN D NOS
     Indication: Lumbar vertebral fracture
     Route: 065
     Dates: start: 201702
  24. IRINOTECAN [Concomitant]
     Active Substance: IRINOTECAN
     Indication: Metastases to liver
     Route: 065
     Dates: start: 20170223
  25. IRINOTECAN [Concomitant]
     Active Substance: IRINOTECAN
     Indication: Colon cancer metastatic
  26. IRINOTECAN [Concomitant]
     Active Substance: IRINOTECAN
     Indication: Metastases to bone
  27. DENOSUMAB [Concomitant]
     Active Substance: DENOSUMAB
     Indication: Lumbar vertebral fracture
     Route: 016
     Dates: start: 201702
  28. CALCIUM [Concomitant]
     Active Substance: CALCIUM
     Indication: Spinal fracture
     Route: 065
     Dates: start: 201702
  29. CALCIUM [Concomitant]
     Active Substance: CALCIUM
     Indication: Pulmonary mass
  30. CALCIUM [Concomitant]
     Active Substance: CALCIUM
     Indication: Metastases to liver

REACTIONS (15)
  - Encephalitis autoimmune [Recovering/Resolving]
  - Mental status changes [Recovering/Resolving]
  - Sleep disorder [Recovering/Resolving]
  - Disorientation [Recovering/Resolving]
  - Therapeutic response decreased [Unknown]
  - Cognitive disorder [Recovering/Resolving]
  - Depressed level of consciousness [Recovering/Resolving]
  - Body temperature increased [Recovering/Resolving]
  - Lethargy [Recovering/Resolving]
  - Amnesia [Recovering/Resolving]
  - Hallucination [Recovering/Resolving]
  - Somnolence [Recovering/Resolving]
  - Psychomotor hyperactivity [Recovering/Resolving]
  - Speech disorder [Recovering/Resolving]
  - Bradykinesia [Recovering/Resolving]

NARRATIVE: CASE EVENT DATE: 20170403
